FAERS Safety Report 23243139 (Version 1)
Quarter: 2023Q4

REPORT INFORMATION
  Report Type: Report from Study
  Country: US (occurrence: US)
  Receive Date: 20231130
  Receipt Date: 20231130
  Transmission Date: 20240110
  Serious: Yes (Hospitalization, Other)
  Sender: FDA-Public Use
  Company Number: US-ALXN-A202306903AA

PATIENT
  Age: 65 Year
  Sex: Female

DRUGS (1)
  1. ULTOMIRIS [Suspect]
     Active Substance: RAVULIZUMAB-CWVZ
     Indication: Myasthenia gravis
     Dosage: UNK
     Route: 065
     Dates: start: 20230424

REACTIONS (13)
  - Fall [Unknown]
  - Myasthenia gravis [Unknown]
  - Mass [Unknown]
  - Eye contusion [Recovered/Resolved]
  - Arthritis [Unknown]
  - Sciatica [Unknown]
  - Pain in extremity [Unknown]
  - Dyspnoea [Unknown]
  - Limb discomfort [Unknown]
  - Diarrhoea [Unknown]
  - Back pain [Unknown]
  - Arthralgia [Unknown]
  - Fatigue [Unknown]

NARRATIVE: CASE EVENT DATE: 20230506
